FAERS Safety Report 9495450 (Version 1)
Quarter: 2013Q3

REPORT INFORMATION
  Report Type: Spontaneous
  Country: US (occurrence: US)
  Receive Date: 20130903
  Receipt Date: 20130903
  Transmission Date: 20140515
  Serious: Yes (Other)
  Sender: FDA-Public Use
  Company Number: US-AMGEN-USASP2013061371

PATIENT
  Sex: Female

DRUGS (1)
  1. PROLIA [Suspect]
     Indication: OSTEOPOROSIS POSTMENOPAUSAL
     Route: 065

REACTIONS (11)
  - Type III immune complex mediated reaction [Recovering/Resolving]
  - Urinary tract infection [Unknown]
  - Skin discolouration [Recovering/Resolving]
  - Skin burning sensation [Recovering/Resolving]
  - Skin irritation [Recovering/Resolving]
  - Dyspepsia [Unknown]
  - Feeling abnormal [Unknown]
  - Insomnia [Unknown]
  - Pruritus [Recovering/Resolving]
  - Back pain [Unknown]
  - Myalgia [Unknown]
